FAERS Safety Report 13875985 (Version 1)
Quarter: 2017Q3

REPORT INFORMATION
  Report Type: Spontaneous
  Country: US (occurrence: US)
  Receive Date: 20170814
  Receipt Date: 20170814
  Transmission Date: 20171127
  Serious: Yes (Hospitalization, Other)
  Sender: FDA-Public Use
  Company Number: None

PATIENT
  Sex: Female
  Weight: 83.25 kg

DRUGS (5)
  1. CANE [Concomitant]
  2. FISH OIL [Concomitant]
     Active Substance: FISH OIL
  3. IRON [Concomitant]
     Active Substance: IRON
  4. MULTIVITAMINS [Concomitant]
     Active Substance: VITAMINS
  5. PROLIA [Suspect]
     Active Substance: DENOSUMAB
     Indication: OSTEOPOROSIS
     Dosage: OTHER FREQUENCY:SEMI ANNUAL;INTRAMUSCULAR?
     Route: 030
     Dates: start: 20141217, end: 20161220

REACTIONS (4)
  - Infection [None]
  - Gait inability [None]
  - Muscular weakness [None]
  - Vertigo [None]

NARRATIVE: CASE EVENT DATE: 20151220
